FAERS Safety Report 4515327-2 (Version None)
Quarter: 2004Q4

REPORT INFORMATION
  Report Type: 
  Country: None (occurrence: None)
  Receive Date: 20041126
  Receipt Date: 20041116
  Transmission Date: 20050328
  Serious: Yes (Hospitalization)
  Sender: FDA-Public Use
  Company Number: 2004079764

PATIENT
  Age: 64 Year
  Sex: Male
  Weight: 95 kg

DRUGS (8)
  1. LUSTRAL (SERTRALINE) [Suspect]
     Indication: DEPRESSION
     Dosage: 100 MG (100 MG, 1 IN 1 D), ORAL
     Route: 048
  2. DEMECLOCYCLINE (DEMECLOCYCLINE) [Suspect]
     Indication: ILL-DEFINED DISORDER
     Dosage: 600 MG (300 MG, 2 IN 1 D)
  3. LISINOPRIL [Concomitant]
  4. ISOSORBIDE MONONITRATE [Concomitant]
  5. ACETAMINOPHEN [Concomitant]
  6. LANSOPRAZOLE [Concomitant]
  7. DIGOXIN [Concomitant]
  8. NICORANDIL (NICORANDIL) [Concomitant]

REACTIONS (2)
  - HYPONATRAEMIA [None]
  - UPPER GASTROINTESTINAL HAEMORRHAGE [None]
